FAERS Safety Report 6771695-2 (Version None)
Quarter: 2010Q2

REPORT INFORMATION
  Report Type: 
  Country: None (occurrence: None)
  Receive Date: 20100616
  Receipt Date: 20090428
  Transmission Date: 20101027
  Serious: No
  Sender: FDA-Public Use
  Company Number: US-ASTRAZENECA-2009UW10672

PATIENT
  Sex: Female

DRUGS (4)
  1. ATACAND [Suspect]
     Route: 048
  2. HCTZ [Concomitant]
  3. PROPRANOLOL [Concomitant]
  4. LEVOTHROID [Concomitant]

REACTIONS (1)
  - NEUROPATHY PERIPHERAL [None]
